FAERS Safety Report 5495634-X (Version None)
Quarter: 2007Q4

REPORT INFORMATION
  Report Type: 
  Country: None (occurrence: None)
  Receive Date: 20071015
  Receipt Date: 20060927
  Transmission Date: 20080405
  Serious: Yes (Hospitalization)
  Sender: FDA-Public Use
  Company Number: S06-USA-03960-01

PATIENT
  Age: 40 Year
  Sex: Female

DRUGS (2)
  1. LEXAPRO [Suspect]
     Indication: DEPRESSION
     Dosage: 10 MG QD PO
     Route: 048
     Dates: start: 20060701, end: 20060920
  2. ALCOHOL [Concomitant]

REACTIONS (6)
  - BLOOD PRESSURE INCREASED [None]
  - DIZZINESS [None]
  - FLIGHT OF IDEAS [None]
  - PALPITATIONS [None]
  - SYNCOPE [None]
  - WEIGHT DECREASED [None]
